FAERS Safety Report 6336072-7 (Version None)
Quarter: 2009Q3

REPORT INFORMATION
  Report Type: 
  Country: None (occurrence: None)
  Receive Date: 20090831
  Receipt Date: 20090831
  Transmission Date: 20100115
  Serious: Yes (Death)
  Sender: FDA-Public Use
  Company Number: None

PATIENT
  Age: 80 Year
  Sex: Female
  Weight: 69.4003 kg

DRUGS (1)
  1. ERLOTINIB [Suspect]
     Indication: NON-SMALL CELL LUNG CANCER
     Dosage: 150MG QD PO
     Route: 048
     Dates: start: 20090615, end: 20090818

REACTIONS (4)
  - ASTHENIA [None]
  - DELIRIUM [None]
  - FATIGUE [None]
  - GENERAL PHYSICAL HEALTH DETERIORATION [None]
